FAERS Safety Report 19392831 (Version 2)
Quarter: 2021Q2

REPORT INFORMATION
  Report Type: Spontaneous
  Country: JP (occurrence: JP)
  Receive Date: 20210609
  Receipt Date: 20210629
  Transmission Date: 20210717
  Serious: Yes (Other)
  Sender: FDA-Public Use
  Company Number: JP-ASTELLAS-2021JP010500

PATIENT
  Age: 32 Year
  Sex: Female

DRUGS (2)
  1. GRACEPTOR [Suspect]
     Active Substance: TACROLIMUS
     Indication: IMMUNOSUPPRESSANT DRUG THERAPY
     Dosage: 3 MG/DAY, UNKNOWN FREQ.
     Route: 048
  2. PREDNISOLONE. [Concomitant]
     Active Substance: PREDNISOLONE
     Indication: IMMUNOSUPPRESSANT DRUG THERAPY
     Dosage: 5 MG/DAY, UNKNOWN FREQ.
     Route: 065

REACTIONS (3)
  - Maternal exposure during pregnancy [Unknown]
  - Premature delivery [Unknown]
  - Renal impairment [Unknown]
